FAERS Safety Report 9240096 (Version 1)
Quarter: 2013Q2

REPORT INFORMATION
  Report Type: Spontaneous
  Country: US (occurrence: None)
  Receive Date: 20130417
  Receipt Date: 20130417
  Transmission Date: 20140414
  Serious: Yes (Hospitalization)
  Sender: FDA-Public Use
  Company Number: US-ALSI-201300030

PATIENT
  Age: 66 Year
  Sex: Male

DRUGS (2)
  1. OXYGEN [Suspect]
     Indication: OXYGEN SUPPLEMENTATION
     Dosage: RESPIRATORY
     Route: 055
  2. NITROUS OXIDE [Concomitant]

REACTIONS (3)
  - Microstomia [None]
  - Thermal burn [None]
  - Injury [None]
